FAERS Safety Report 12477514 (Version 1)
Quarter: 2016Q2

REPORT INFORMATION
  Report Type: Spontaneous
  Country: FR (occurrence: FR)
  Receive Date: 20160617
  Receipt Date: 20160617
  Transmission Date: 20160815
  Serious: Yes (Hospitalization)
  Sender: FDA-Public Use
  Company Number: FR-TEVA-667831ISR

PATIENT
  Age: 13 Year
  Sex: Female
  Weight: 43 kg

DRUGS (8)
  1. VINCRISTINE HOSPIRA [Suspect]
     Active Substance: VINCRISTINE
     Indication: EWING^S SARCOMA
     Dosage: VIDE PROTOCOL
     Route: 042
     Dates: start: 20160527, end: 20160527
  2. DOXORUBICINE TEVA [Suspect]
     Active Substance: DOXORUBICIN
     Indication: EWING^S SARCOMA
     Dosage: VIDE PROTOCOL
     Route: 042
     Dates: start: 20160527, end: 20160529
  3. ZOPHREN [Concomitant]
     Active Substance: ONDANSETRON
     Route: 042
  4. IFOSFAMIDE EG LABO [Suspect]
     Active Substance: IFOSFAMIDE
     Indication: EWING^S SARCOMA
     Dosage: VIDE PROTOCOL
     Route: 042
     Dates: start: 20160527, end: 20160529
  5. VOGALENE [Concomitant]
     Active Substance: METOPIMAZINE
     Dosage: 42.57 MILLIGRAM DAILY;
  6. SOLU-MEDROL [Concomitant]
     Active Substance: METHYLPREDNISOLONE SODIUM SUCCINATE
     Route: 042
  7. ETOPOSIDE TEVA [Suspect]
     Active Substance: ETOPOSIDE
     Indication: EWING^S SARCOMA
     Dosage: VIDE PROTOCOL
     Route: 042
     Dates: start: 20160527, end: 20160529
  8. UROMITEXAN [Concomitant]
     Active Substance: MESNA
     Dosage: VIDE PROTOCOL
     Route: 042

REACTIONS (2)
  - Depressed level of consciousness [Recovering/Resolving]
  - Encephalopathy [Recovering/Resolving]

NARRATIVE: CASE EVENT DATE: 20160529
